FAERS Safety Report 18554780 (Version 1)
Quarter: 2020Q4

REPORT INFORMATION
  Report Type: Spontaneous
  Country: JP (occurrence: JP)
  Receive Date: 20201127
  Receipt Date: 20201127
  Transmission Date: 20210114
  Serious: Yes (Death, Other)
  Sender: FDA-Public Use
  Company Number: JP-GILEAD-2019-0421580

PATIENT
  Age: 72 Year
  Sex: Male

DRUGS (5)
  1. EPCLUSA [Suspect]
     Active Substance: SOFOSBUVIR\VELPATASVIR
     Indication: HEPATIC CIRRHOSIS
     Dosage: 1 DOSAGE FORM, QD
     Route: 048
     Dates: start: 20190719, end: 201909
  2. LIOVEL [Concomitant]
     Active Substance: ALOGLIPTIN BENZOATE\PIOGLITAZONE HYDROCHLORIDE
     Dosage: UNK
  3. GLIMEPIRIDE. [Concomitant]
     Active Substance: GLIMEPIRIDE
     Dosage: UNK
  4. FUROSEMIDE. [Concomitant]
     Active Substance: FUROSEMIDE
     Dosage: UNK
  5. SPIRONOLACTONE. [Concomitant]
     Active Substance: SPIRONOLACTONE
     Dosage: UNK

REACTIONS (4)
  - Ascites [Unknown]
  - Blood bilirubin unconjugated increased [Recovering/Resolving]
  - Pleural effusion [Unknown]
  - Hepatic failure [Fatal]

NARRATIVE: CASE EVENT DATE: 20190801
